FAERS Safety Report 9518424 (Version 1)
Quarter: 2013Q3

REPORT INFORMATION
  Report Type: Report from Study
  Country: US (occurrence: US)
  Receive Date: 20130912
  Receipt Date: 20130912
  Transmission Date: 20140515
  Serious: Yes (Death, Other)
  Sender: FDA-Public Use
  Company Number: US-CELGENEUS-163-21880-13090957

PATIENT
  Age: 67 Year
  Sex: Male

DRUGS (14)
  1. REVLIMID [Suspect]
     Indication: CHRONIC LYMPHOCYTIC LEUKAEMIA
     Dosage: 10 MILLIGRAM
     Route: 048
  2. REVLIMID [Suspect]
     Dosage: 1.6667 MILLIGRAM
     Route: 048
  3. OFATUMUMAB [Suspect]
     Indication: CHRONIC LYMPHOCYTIC LEUKAEMIA
     Dosage: 300 MILLIGRAM
     Route: 041
  4. OFATUMUMAB [Suspect]
     Dosage: 1000 MILLIGRAM
     Route: 041
  5. OFATUMUMAB [Suspect]
     Route: 041
  6. OFATUMUMAB [Suspect]
     Route: 041
  7. PREDNISONE [Concomitant]
     Indication: PRODUCT USED FOR UNKNOWN INDICATION
     Route: 048
  8. DEXAMETHASONE [Concomitant]
     Indication: PRODUCT USED FOR UNKNOWN INDICATION
     Route: 065
  9. IMMUNOGLOBULIN [Concomitant]
     Indication: PARVOVIRUS INFECTION
     Dosage: 0.5 G/KG
     Route: 041
  10. ANTIMICROBIALS [Concomitant]
     Indication: PRODUCT USED FOR UNKNOWN INDICATION
     Route: 065
  11. ANTIFUNGALS [Concomitant]
     Indication: PRODUCT USED FOR UNKNOWN INDICATION
     Route: 065
  12. ANTIVIRALS [Concomitant]
     Indication: PRODUCT USED FOR UNKNOWN INDICATION
     Route: 065
  13. CYTARABINE [Concomitant]
     Indication: PRODUCT USED FOR UNKNOWN INDICATION
     Route: 037
  14. CYTARABINE [Concomitant]
     Dosage: 2 G/M2
     Route: 041

REACTIONS (9)
  - Death [Fatal]
  - Encephalitis [Unknown]
  - Aplasia pure red cell [Unknown]
  - Optic neuropathy [Unknown]
  - Richter^s syndrome [Unknown]
  - Erythema infectiosum [Unknown]
  - Neutropenia [Unknown]
  - Blister [Unknown]
  - Pneumonia [Unknown]
